FAERS Safety Report 7910154-8 (Version None)
Quarter: 2011Q4

REPORT INFORMATION
  Report Type: 
  Country: None (occurrence: None)
  Receive Date: 20111111
  Receipt Date: 20111107
  Transmission Date: 20120403
  Serious: Yes (Hospitalization)
  Sender: FDA-Public Use
  Company Number: US-ABBOTT-11P-163-0871925-00

PATIENT
  Sex: Male

DRUGS (1)
  1. NIASPAN [Suspect]
     Indication: BLOOD TRIGLYCERIDES INCREASED

REACTIONS (1)
  - PYREXIA [None]
